FAERS Safety Report 6330792-6 (Version None)
Quarter: 2009Q3

REPORT INFORMATION
  Report Type: 
  Country: None (occurrence: None)
  Receive Date: 20090827
  Receipt Date: 20090820
  Transmission Date: 20100115
  Serious: Yes (Hospitalization, Other)
  Sender: FDA-Public Use
  Company Number: PHHY2009JP35219

PATIENT
  Age: 48 Year
  Sex: Male

DRUGS (4)
  1. TEGRETOL [Suspect]
     Indication: TRIGEMINAL NEURALGIA
     Dosage: 200 MG/DAY
     Route: 048
     Dates: end: 20090818
  2. ADALAT CC [Concomitant]
     Dosage: 20 MG, UNK
     Route: 048
  3. PREDONINE [Concomitant]
     Dosage: 2.5 MG, UNK
     Route: 048
  4. SOLON [Concomitant]
     Dosage: 100 MG, UNK
     Route: 048

REACTIONS (3)
  - BLOOD CREATININE INCREASED [None]
  - PROTEINURIA [None]
  - TUBULOINTERSTITIAL NEPHRITIS [None]
